FAERS Safety Report 16085760 (Version 2)
Quarter: 2019Q1

REPORT INFORMATION
  Report Type: Report from Study
  Country: JP (occurrence: JP)
  Receive Date: 20190318
  Receipt Date: 20190329
  Transmission Date: 20190418
  Serious: No
  Sender: FDA-Public Use
  Company Number: JP-GILEAD-2019-0396974

PATIENT
  Age: 66 Year
  Sex: Male
  Weight: 50.9 kg

DRUGS (1)
  1. TENOFOVIR DISOPROXIL FUMARATE. [Suspect]
     Active Substance: TENOFOVIR DISOPROXIL FUMARATE
     Indication: CHRONIC HEPATITIS B
     Dosage: 300 MG, 1D
     Route: 048
     Dates: start: 20171220

REACTIONS (1)
  - Beta 2 microglobulin urine increased [Not Recovered/Not Resolved]

NARRATIVE: CASE EVENT DATE: 20190213
